FAERS Safety Report 7103590-3 (Version None)
Quarter: 2010Q4

REPORT INFORMATION
  Report Type: 
  Country: None (occurrence: None)
  Receive Date: 20101115
  Receipt Date: 20101111
  Transmission Date: 20110411
  Serious: Yes (Hospitalization)
  Sender: FDA-Public Use
  Company Number: GXKR2009DE04193

PATIENT
  Age: 77 Year
  Sex: Female
  Weight: 88 kg

DRUGS (9)
  1. BISOPROLOL (NGX) [Suspect]
     Indication: TACHYARRHYTHMIA
     Dosage: 5 MG, QD
     Route: 048
     Dates: start: 20080101
  2. FALITHROM (NGX) [Suspect]
     Indication: PULMONARY EMBOLISM
     Dosage: 5X1.5MG AND 2X3MG/WEEKLY
     Route: 048
     Dates: start: 20080101
  3. CLEXANE [Suspect]
     Indication: PULMONARY EMBOLISM
     Dosage: 80 MG, QD
     Route: 058
     Dates: start: 20080101, end: 20080414
  4. DIGITOXIN TAB [Suspect]
     Indication: TACHYARRHYTHMIA
     Dosage: 0.07 MG, UNK
     Route: 048
     Dates: start: 20080101
  5. FOTIL [Concomitant]
  6. FUROSEMIDE [Concomitant]
     Route: 048
  7. OMEP [Concomitant]
     Route: 048
  8. PENTAERYTHRITOL TETRANITRATE [Concomitant]
     Route: 048
  9. RAMIPRIL [Concomitant]
     Route: 048

REACTIONS (2)
  - ABDOMINAL WALL HAEMATOMA [None]
  - BRADYCARDIA [None]
